FAERS Safety Report 16915032 (Version 1)
Quarter: 2019Q4

REPORT INFORMATION
  Report Type: Spontaneous
  Country: US (occurrence: US)
  Receive Date: 20190822
  Receipt Date: 20190822
  Transmission Date: 20200122
  Serious: Yes (Other)
  Sender: FDA-Public Use
  Company Number: None

PATIENT
  Age: 80 Year
  Sex: Female
  Weight: 47.63 kg

DRUGS (3)
  1. LORAZEPAM 1MG TABLET [Suspect]
     Active Substance: LORAZEPAM
     Indication: PREOPERATIVE CARE
     Route: 048
     Dates: start: 20190802, end: 20190802
  2. MULTIVITAMINS [Concomitant]
     Active Substance: VITAMINS
  3. LEVOTHYROXINE. [Concomitant]
     Active Substance: LEVOTHYROXINE

REACTIONS (6)
  - Urinary incontinence [None]
  - Coordination abnormal [None]
  - Gait disturbance [None]
  - Disturbance in attention [None]
  - Memory impairment [None]
  - Product quality issue [None]

NARRATIVE: CASE EVENT DATE: 20190802
